FAERS Safety Report 15405844 (Version 1)
Quarter: 2018Q3

REPORT INFORMATION
  Report Type: Spontaneous
  Country: US (occurrence: US)
  Receive Date: 20180918
  Receipt Date: 20180918
  Transmission Date: 20181010
  Serious: Yes (Life-Threatening, Hospitalization)
  Sender: FDA-Public Use
  Company Number: None

PATIENT
  Age: 69 Year
  Sex: Male
  Weight: 81 kg

DRUGS (5)
  1. OMEPRAZOLE. [Concomitant]
     Active Substance: OMEPRAZOLE
  2. ACAI TABLETS [Concomitant]
  3. LANTUS [Concomitant]
     Active Substance: INSULIN GLARGINE
  4. LIPITOR [Concomitant]
     Active Substance: ATORVASTATIN CALCIUM
  5. INVOKANA [Suspect]
     Active Substance: CANAGLIFLOZIN
     Indication: DIABETES MELLITUS
     Route: 030
     Dates: start: 20160405, end: 20170803

REACTIONS (8)
  - Diabetes mellitus inadequate control [None]
  - Depression [None]
  - Pain [None]
  - Necrotising fasciitis [None]
  - Weight decreased [None]
  - Sepsis [None]
  - Supraventricular tachycardia [None]
  - Anxiety [None]

NARRATIVE: CASE EVENT DATE: 20170805
